FAERS Safety Report 10805471 (Version 1)
Quarter: 2015Q1

REPORT INFORMATION
  Report Type: Report from Study
  Country: US (occurrence: US)
  Receive Date: 20150217
  Receipt Date: 20150217
  Transmission Date: 20150721
  Serious: No
  Sender: FDA-Public Use
  Company Number: US-ABBVIE-14K-163-1262866-00

PATIENT
  Age: 24 Year
  Sex: Female

DRUGS (4)
  1. HUMIRA [Suspect]
     Active Substance: ADALIMUMAB
     Indication: RHEUMATOID ARTHRITIS
     Dates: start: 201405
  2. GLUCOSAMINE [Concomitant]
     Active Substance: GLUCOSAMINE
     Indication: NUTRITIONAL SUPPLEMENTATION
  3. VITAMIN B12 [Concomitant]
     Active Substance: CYANOCOBALAMIN
     Indication: VITAMIN SUPPLEMENTATION
     Dosage: WOMENS ONE A DAY
  4. COQ10 [Concomitant]
     Active Substance: UBIDECARENONE
     Indication: NUTRITIONAL SUPPLEMENTATION

REACTIONS (14)
  - Eye irritation [Unknown]
  - Headache [Unknown]
  - Injection site erythema [Not Recovered/Not Resolved]
  - Injection site swelling [Recovered/Resolved]
  - Injection site warmth [Recovered/Resolved]
  - Injection site bruising [Unknown]
  - Nasal discomfort [Unknown]
  - Injection site pain [Recovered/Resolved]
  - Skin tightness [Unknown]
  - Seasonal allergy [Unknown]
  - Injection site warmth [Unknown]
  - Injection site swelling [Unknown]
  - Injection site pain [Unknown]
  - Injection site haemorrhage [Not Recovered/Not Resolved]

NARRATIVE: CASE EVENT DATE: 201405
